FAERS Safety Report 8645779 (Version 2)
Quarter: 2016Q3

REPORT INFORMATION
  Report Type: Spontaneous
  Country: US (occurrence: US)
  Receive Date: 20120702
  Receipt Date: 20160912
  Transmission Date: 20161109
  Serious: Yes (Death)
  Sender: FDA-Public Use
  Company Number: US-ROCHE-1082407

PATIENT
  Age: 75 Year
  Sex: Female

DRUGS (27)
  1. BIVALIRUDIN. [Suspect]
     Active Substance: BIVALIRUDIN
     Indication: PULMONARY EMBOLISM
     Route: 065
  2. VITAMIN B1 [Concomitant]
     Active Substance: THIAMINE HYDROCHLORIDE
     Route: 048
  3. XOPENEX [Concomitant]
     Active Substance: LEVALBUTEROL HYDROCHLORIDE
     Dosage: NEBULIZER ROUTE INHALATION
     Route: 065
  4. CIPROFLOXACIN. [Concomitant]
     Active Substance: CIPROFLOXACIN
     Route: 042
  5. LINEZOLID. [Concomitant]
     Active Substance: LINEZOLID
     Route: 042
  6. DOPAMINE [Concomitant]
     Active Substance: DOPAMINE\DOPAMINE HYDROCHLORIDE
     Route: 042
  7. VASOPRESSIN. [Concomitant]
     Active Substance: VASOPRESSIN
     Dosage: 57.6 U (0.04 U, 1 IN 1 MINUTE)
     Route: 042
  8. SPIRONOLACTONE. [Concomitant]
     Active Substance: SPIRONOLACTONE
     Route: 048
  9. ACTILYSE [Suspect]
     Active Substance: ALTEPLASE
     Indication: PULMONARY EMBOLISM
     Dosage: OVER 2 HOURS
     Route: 042
  10. HEPARIN [Suspect]
     Active Substance: HEPARIN SODIUM
     Indication: PULMONARY EMBOLISM
     Route: 058
  11. CITRACAL (CALCIUM CITRATE) [Concomitant]
     Active Substance: CALCIUM CITRATE
     Route: 048
  12. CEFEPIME [Concomitant]
     Active Substance: CEFEPIME HYDROCHLORIDE
     Route: 042
  13. HYDROCORTISONE. [Concomitant]
     Active Substance: HYDROCORTISONE
     Route: 042
  14. DOBUTAMINE [Concomitant]
     Active Substance: DOBUTAMINE\DOBUTAMINE HYDROCHLORIDE
     Route: 042
  15. LORAZEPAM. [Concomitant]
     Active Substance: LORAZEPAM
     Indication: ANXIETY
     Dosage: AS REQUIRED
     Route: 048
  16. INSULIN [Concomitant]
     Active Substance: INSULIN NOS
  17. PANTOPRAZOLE [Concomitant]
     Active Substance: PANTOPRAZOLE SODIUM
     Route: 042
  18. AMIODARONE [Concomitant]
     Active Substance: AMIODARONE
     Route: 042
  19. SALINE [Concomitant]
     Active Substance: SODIUM CHLORIDE
     Dosage: 1 SPRAY INTO NOSTRILS
     Route: 045
  20. METOPROLOL. [Concomitant]
     Active Substance: METOPROLOL
     Route: 048
  21. ENOXAPARIN [Suspect]
     Active Substance: ENOXAPARIN
     Indication: PULMONARY EMBOLISM
     Dosage: ENOXAPARIN: 1 MG/KG
     Route: 058
  22. BIOTIN [Concomitant]
     Active Substance: BIOTIN
     Route: 048
  23. NOREPINEPHRINE [Concomitant]
     Active Substance: NOREPINEPHRINE\NOREPINEPHRINE BITARTRATE
     Route: 042
  24. FENTANYL. [Concomitant]
     Active Substance: FENTANYL
     Route: 042
  25. ACETYLCYSTEINE. [Concomitant]
     Active Substance: ACETYLCYSTEINE
     Dosage: NEBULIZER AND ROUTE INHALATION
     Route: 065
  26. NORMAL SALINE [Concomitant]
     Active Substance: SODIUM CHLORIDE
     Route: 042
  27. DOCUSATE [Concomitant]
     Active Substance: DOCUSATE
     Dosage: AS NEEDED
     Route: 048

REACTIONS (11)
  - Coagulopathy [Fatal]
  - Toxic epidermal necrolysis [Fatal]
  - Multiple organ dysfunction syndrome [Fatal]
  - Septic shock [Fatal]
  - Hepatic failure [Fatal]
  - Respiratory failure [Fatal]
  - Encephalopathy [Fatal]
  - Anaemia [Fatal]
  - Cardiogenic shock [Fatal]
  - Thrombocytopenia [Fatal]
  - Renal failure [Fatal]
